APPROVED DRUG PRODUCT: IDHIFA
Active Ingredient: ENASIDENIB MESYLATE
Strength: EQ 100MG BASE
Dosage Form/Route: TABLET;ORAL
Application: N209606 | Product #002
Applicant: BRISTOL MYERS SQUIBB
Approved: Aug 1, 2017 | RLD: Yes | RS: Yes | Type: RX

PATENTS:
Patent 9512107 | Expires: Jan 7, 2033
Patent 10093654 | Expires: Aug 1, 2034
Patent 10294215 | Expires: Jan 7, 2033
Patent 10610125 | Expires: Jun 21, 2030
Patent 9732062 | Expires: Sep 16, 2034
Patent 9738625 | Expires: Aug 1, 2034